FAERS Safety Report 7573770-1 (Version None)
Quarter: 2011Q2

REPORT INFORMATION
  Report Type: 
  Country: None (occurrence: None)
  Receive Date: 20110622
  Receipt Date: 20110606
  Transmission Date: 20111010
  Serious: Yes (Hospitalization, Other)
  Sender: FDA-Public Use
  Company Number: US-JNJFOC-20110402566

PATIENT
  Age: 82 Year
  Sex: Male

DRUGS (16)
  1. DACOGEN [Suspect]
     Indication: CHRONIC MYELOMONOCYTIC LEUKAEMIA
     Dosage: FOR 5 DAYS, INTRAVENOUS
     Route: 042
  2. CIPRO [Concomitant]
  3. METOPROLOL TARTRATE (MRETOPROLOL TARTRATE) [Concomitant]
  4. FLOMAX [Concomitant]
  5. SYNTHROID [Concomitant]
  6. VITAMIN B COMPLEX PREPARATIONS (B-KOMPLEX) [Concomitant]
  7. B VITAMIN WITH FOLIC ACID (FOLIC ACID W/VITAMIN B NOS) [Concomitant]
  8. HYDREA [Concomitant]
  9. ECULIZUMAB (ECULIZUMAB) [Suspect]
     Indication: PAROXYSMAL NOCTURNAL HAEMOGLOBINURIA
     Dosage: 900 MG, 1 IN 2 WEEK, INTRAVENOUS
     Route: 042
     Dates: start: 20110224
  10. ECULIZUMAB (ECULIZUMAB) [Suspect]
     Indication: PAROXYSMAL NOCTURNAL HAEMOGLOBINURIA
     Dosage: 900 MG, 1 IN 2 WEEK, INTRAVENOUS
     Route: 042
     Dates: start: 20110520
  11. ECULIZUMAB (ECULIZUMAB) [Suspect]
     Indication: PAROXYSMAL NOCTURNAL HAEMOGLOBINURIA
     Dosage: 900 MG, 1 IN 2 WEEK, INTRAVENOUS
     Route: 042
     Dates: end: 20110324
  12. ECULIZUMAB (ECULIZUMAB) [Suspect]
     Indication: PAROXYSMAL NOCTURNAL HAEMOGLOBINURIA
     Dosage: 900 MG, 1 IN 2 WEEK, INTRAVENOUS
     Route: 042
     Dates: start: 20101101
  13. NEXIUM [Concomitant]
  14. MULTIVITAMINS WITH MINERALS (MULTIVITAMINS W/MINERALS) [Concomitant]
  15. PROSCAR [Concomitant]
  16. COUMADIN [Concomitant]

REACTIONS (7)
  - HAEMOGLOBIN DECREASED [None]
  - FATIGUE [None]
  - HYPOPHAGIA [None]
  - PYREXIA [None]
  - HAEMATOCRIT DECREASED [None]
  - WHITE BLOOD CELL COUNT INCREASED [None]
  - PLATELET COUNT DECREASED [None]
